FAERS Safety Report 6289619-3 (Version None)
Quarter: 2009Q3

REPORT INFORMATION
  Report Type: 
  Country: None (occurrence: None)
  Receive Date: 20090729
  Receipt Date: 20090729
  Transmission Date: 20100115
  Serious: Yes (Other)
  Sender: FDA-Public Use
  Company Number: None

PATIENT
  Sex: Male
  Weight: 103.8737 kg

DRUGS (2)
  1. PROZAC [Suspect]
     Indication: ANXIETY
     Dosage: 40 MG ONCE PO BID
     Route: 048
  2. PROZAC [Suspect]
     Indication: DEPRESSION
     Dosage: 40 MG ONCE PO BID
     Route: 048

REACTIONS (5)
  - DRUG INEFFECTIVE [None]
  - IMPAIRED WORK ABILITY [None]
  - PHOTOPHOBIA [None]
  - VERTIGO [None]
  - VOMITING [None]
